FAERS Safety Report 25399140 (Version 7)
Quarter: 2025Q4

REPORT INFORMATION
  Report Type: Report from Study
  Country: CA (occurrence: CA)
  Receive Date: 20250605
  Receipt Date: 20251015
  Transmission Date: 20260117
  Serious: Yes (Other)
  Sender: JOHNSON AND JOHNSON
  Company Number: CA-JNJFOC-20241054522

PATIENT
  Age: 32 Year
  Sex: Female

DRUGS (7)
  1. REMICADE [Suspect]
     Active Substance: INFLIXIMAB
     Indication: Crohn^s disease
     Dosage: MA-2027 X8
     Route: 041
     Dates: start: 20150414
  2. REMICADE [Suspect]
     Active Substance: INFLIXIMAB
     Dosage: LOT EXPIRATION DATE : MA-2027 X8
     Route: 041
     Dates: start: 20150414
  3. REMICADE [Suspect]
     Active Substance: INFLIXIMAB
     Route: 041
     Dates: start: 20150414
  4. REMICADE [Suspect]
     Active Substance: INFLIXIMAB
     Route: 041
     Dates: start: 20150414
  5. REMICADE [Suspect]
     Active Substance: INFLIXIMAB
     Dosage: 8 VIALS
     Route: 041
  6. REMICADE [Suspect]
     Active Substance: INFLIXIMAB
     Dosage: 8 VIALS
     Route: 041
  7. ZOLOFT [Concomitant]
     Active Substance: SERTRALINE HYDROCHLORIDE
     Indication: Product used for unknown indication

REACTIONS (7)
  - Crohn^s disease [Not Recovered/Not Resolved]
  - Skin infection [Not Recovered/Not Resolved]
  - Staphylococcal infection [Recovering/Resolving]
  - Eye irritation [Recovered/Resolved]
  - Ocular hyperaemia [Recovered/Resolved]
  - Tympanic membrane perforation [Unknown]
  - Product dose omission issue [Unknown]

NARRATIVE: CASE EVENT DATE: 20240701
